FAERS Safety Report 21553701 (Version 7)
Quarter: 2023Q1

REPORT INFORMATION
  Report Type: Spontaneous
  Country: US (occurrence: US)
  Receive Date: 20221104
  Receipt Date: 20230331
  Transmission Date: 20230417
  Serious: Yes (Hospitalization, Disabling, Other)
  Sender: FDA-Public Use
  Company Number: US-ORGANON-O2211USA000130

PATIENT
  Sex: Female
  Weight: 103.1 kg

DRUGS (8)
  1. SINGULAIR [Suspect]
     Active Substance: MONTELUKAST SODIUM
     Indication: Asthma
     Dosage: 1 TABLET EVERY DAY IN THE EVENING
     Route: 048
     Dates: start: 2010, end: 2012
  2. SINGULAIR [Suspect]
     Active Substance: MONTELUKAST SODIUM
     Indication: Hypersensitivity
  3. SINGULAIR [Suspect]
     Active Substance: MONTELUKAST SODIUM
     Indication: Chronic obstructive pulmonary disease
  4. MONTELUKAST SODIUM [Suspect]
     Active Substance: MONTELUKAST SODIUM
     Indication: Asthma
     Dosage: 1 TABLET EVERY DAY IN THE EVENING
     Route: 048
     Dates: end: 202005
  5. MONTELUKAST SODIUM [Suspect]
     Active Substance: MONTELUKAST SODIUM
     Indication: Hypersensitivity
  6. CANNABIS SATIVA SUBSP. INDICA TOP [Suspect]
     Active Substance: CANNABIS SATIVA SUBSP. INDICA TOP
     Dosage: UNK
  7. CANNABIS SATIVA SUBSP. INDICA TOP [Suspect]
     Active Substance: CANNABIS SATIVA SUBSP. INDICA TOP
     Dosage: UNK
  8. KLONOPIN [Suspect]
     Active Substance: CLONAZEPAM
     Indication: Suicidal ideation
     Dosage: APPROX. 90 (\^A BOTTLE AND A HALF\^)
     Dates: start: 20150729

REACTIONS (31)
  - Neuropsychiatric symptoms [Not Recovered/Not Resolved]
  - Major depression [Not Recovered/Not Resolved]
  - Drug abuse [Unknown]
  - Suicidal ideation [Recovered/Resolved]
  - Hypothyroidism [Unknown]
  - Craniocerebral injury [Unknown]
  - Bipolar I disorder [Unknown]
  - Post-traumatic stress disorder [Unknown]
  - Cervical radiculopathy [Unknown]
  - Anxiety [Unknown]
  - Cervix carcinoma stage 0 [Unknown]
  - Depression [Recovered/Resolved]
  - Suicide attempt [Unknown]
  - Self-injurious ideation [Unknown]
  - Obsessive-compulsive disorder [Unknown]
  - Obesity [Unknown]
  - Polycythaemia [Unknown]
  - Somatic symptom disorder [Unknown]
  - Nicotine dependence [Unknown]
  - Seasonal allergy [Unknown]
  - Tendonitis [Unknown]
  - Memory impairment [Unknown]
  - Hyperglycaemia [Unknown]
  - Insomnia [Unknown]
  - Generalised anxiety disorder [Unknown]
  - Fall [Unknown]
  - Head injury [Unknown]
  - Nightmare [Unknown]
  - Intentional overdose [Unknown]
  - Product prescribing issue [Unknown]
  - Product use in unapproved indication [Unknown]

NARRATIVE: CASE EVENT DATE: 20100101
